FAERS Safety Report 10255516 (Version 1)
Quarter: 2014Q2

REPORT INFORMATION
  Report Type: Spontaneous
  Country: US (occurrence: US)
  Receive Date: 20140624
  Receipt Date: 20140624
  Transmission Date: 20141212
  Serious: Yes (Death)
  Sender: FDA-Public Use
  Company Number: US-SA-2014SA080952

PATIENT
  Age: 65 Year
  Sex: Female

DRUGS (1)
  1. RENVELA [Suspect]
     Indication: HYPERPHOSPHATAEMIA
     Dosage: 800 MG TABLET, 3 TABLETS WITH MEALS AND 1 WITH SNACKS
     Route: 048

REACTIONS (1)
  - Death [Fatal]
